FAERS Safety Report 9145996 (Version 1)
Quarter: 2013Q1

REPORT INFORMATION
  Report Type: Spontaneous
  Country: US (occurrence: US)
  Receive Date: 20130307
  Receipt Date: 20130307
  Transmission Date: 20140127
  Serious: Yes (Other)
  Sender: FDA-Public Use
  Company Number: US-ELI_LILLY_AND_COMPANY-US201302010186

PATIENT
  Age: 79 Year
  Sex: Female

DRUGS (1)
  1. ZYPREXA [Suspect]
     Indication: AFFECTIVE DISORDER
     Dosage: 5 MG, EACH EVENING
     Dates: start: 20100915

REACTIONS (1)
  - Fall [Unknown]
